FAERS Safety Report 6599344-7 (Version None)
Quarter: 2010Q1

REPORT INFORMATION
  Report Type: 
  Country: None (occurrence: None)
  Receive Date: 20100217
  Receipt Date: 20100202
  Transmission Date: 20100710
  Serious: Yes (Other)
  Sender: FDA-Public Use
  Company Number: B0632583A

PATIENT
  Sex: 0

DRUGS (2)
  1. MELPHALAN HYDROCHLORIDE [Suspect]
     Indication: NEOPLASM MALIGNANT
     Dosage: INTRAVENOUS INFUSION
     Route: 042
  2. DACTINOMYCIN [Suspect]
     Indication: NEOPLASM MALIGNANT
     Dosage: INTRAVENOUS INFUSION
     Route: 042

REACTIONS (1)
  - THERAPEUTIC AGENT TOXICITY [None]
